FAERS Safety Report 18306832 (Version 1)
Quarter: 2020Q3

REPORT INFORMATION
  Report Type: Spontaneous
  Country: US (occurrence: US)
  Receive Date: 20200923
  Receipt Date: 20200923
  Transmission Date: 20201103
  Serious: No
  Sender: FDA-Public Use
  Company Number: None

PATIENT
  Sex: Female

DRUGS (7)
  1. HUMIRA [Suspect]
     Active Substance: ADALIMUMAB
     Route: 058
  2. CYCLODENZAPR [Concomitant]
  3. LEXAPRO [Concomitant]
     Active Substance: ESCITALOPRAM OXALATE
  4. MUPIROCIN. [Concomitant]
     Active Substance: MUPIROCIN
  5. ETODOCOLAC [Concomitant]
  6. AJOVY [Concomitant]
     Active Substance: FREMANEZUMAB-VFRM
  7. SMZ/TMP DS [Concomitant]
     Active Substance: SULFAMETHOXAZOLE\TRIMETHOPRIM

REACTIONS (5)
  - Arthralgia [None]
  - Surgery [None]
  - Pain [None]
  - Therapy interrupted [None]
  - Fatigue [None]
